FAERS Safety Report 7372893-X (Version None)
Quarter: 2011Q1

REPORT INFORMATION
  Report Type: 
  Country: None (occurrence: None)
  Receive Date: 20110324
  Receipt Date: 20110321
  Transmission Date: 20110831
  Serious: Yes (Other)
  Sender: FDA-Public Use
  Company Number: US-PFIZER INC-2011062742

PATIENT
  Sex: Female
  Weight: 52 kg

DRUGS (1)
  1. XANAX [Suspect]
     Indication: ANXIETY
     Dosage: 0.5 MG, 3X/DAY
     Route: 048

REACTIONS (2)
  - DIZZINESS [None]
  - ANAEMIA [None]
